FAERS Safety Report 10208353 (Version 1)
Quarter: 2014Q2

REPORT INFORMATION
  Report Type: Spontaneous
  Country: US (occurrence: US)
  Receive Date: 20140530
  Receipt Date: 20140530
  Transmission Date: 20141212
  Serious: No
  Sender: FDA-Public Use
  Company Number: US-BAYER-2014-081332

PATIENT
  Sex: Female

DRUGS (2)
  1. MIRENA [Suspect]
     Indication: CONTRACEPTION
     Dosage: UNK
     Dates: start: 20130116, end: 20140527
  2. MIRENA [Suspect]
     Indication: MENORRHAGIA

REACTIONS (3)
  - Device expulsion [None]
  - Pain [None]
  - Medical device discomfort [None]
